FAERS Safety Report 7808093-6 (Version None)
Quarter: 2011Q4

REPORT INFORMATION
  Report Type: 
  Country: None (occurrence: None)
  Receive Date: 20111011
  Receipt Date: 20110926
  Transmission Date: 20120403
  Serious: Yes (Other)
  Sender: FDA-Public Use
  Company Number: ES-ROCHE-1000389

PATIENT
  Age: 60 Year
  Sex: Female

DRUGS (8)
  1. CLONAZEPAM [Suspect]
     Route: 048
     Dates: end: 20110628
  2. ENALAPRIL MALEATE [Concomitant]
  3. ATORVASTATIN [Concomitant]
  4. QUETIAPINE FUMARATE [Suspect]
     Indication: DEPRESSION
     Route: 048
     Dates: start: 20110628, end: 20110704
  5. QUETIAPINE FUMARATE [Suspect]
     Route: 048
     Dates: end: 20110628
  6. DULOXETINE HYDROCHLORIDE [Concomitant]
     Indication: DEPRESSION
     Route: 048
     Dates: start: 20070101, end: 20110628
  7. CLONAZEPAM [Suspect]
     Indication: DEPRESSION
     Route: 048
     Dates: start: 20110628
  8. CIPROFLOXACIN [Concomitant]
     Indication: URINARY TRACT INFECTION
     Route: 048
     Dates: start: 20110601

REACTIONS (2)
  - DIZZINESS [None]
  - HYPOTENSION [None]
